FAERS Safety Report 9951364 (Version 2)
Quarter: 2014Q1

REPORT INFORMATION
  Report Type: Report from Study
  Country: US (occurrence: US)
  Receive Date: 20140304
  Receipt Date: 20140304
  Transmission Date: 20141002
  Serious: No
  Sender: FDA-Public Use
  Company Number: US-ABBVIE-12P-163-0978957-00

PATIENT
  Age: 25 Year
  Sex: Female
  Weight: 86.26 kg

DRUGS (3)
  1. HUMIRA [Suspect]
     Indication: CROHN^S DISEASE
     Dosage: FIRST LOADING DOSE
     Dates: start: 201204, end: 201204
  2. HUMIRA [Suspect]
     Dosage: 2 WEEKS AFTER 160 MG DOSE
     Dates: start: 2012, end: 2012
  3. HUMIRA [Suspect]
     Dates: start: 2012

REACTIONS (2)
  - Menorrhagia [Not Recovered/Not Resolved]
  - Breast tenderness [Not Recovered/Not Resolved]
